FAERS Safety Report 6153895-8 (Version None)
Quarter: 2009Q2

REPORT INFORMATION
  Report Type: 
  Country: None (occurrence: None)
  Receive Date: 20090414
  Receipt Date: 20090413
  Transmission Date: 20091009
  Serious: Yes (Hospitalization)
  Sender: FDA-Public Use
  Company Number: DE-JNJFOC-20090402958

PATIENT
  Age: 80 Year
  Sex: Female

DRUGS (3)
  1. TAVANIC [Suspect]
     Indication: BRONCHITIS
     Route: 048
     Dates: start: 20090309, end: 20090314
  2. MARCUMAR [Interacting]
     Indication: ATRIAL FIBRILLATION
     Route: 042
  3. MELPHALAN [Concomitant]
     Indication: PLASMACYTOMA
     Route: 042

REACTIONS (2)
  - DRUG INTERACTION [None]
  - MUSCLE HAEMORRHAGE [None]
